FAERS Safety Report 7973857-5 (Version None)
Quarter: 2011Q4

REPORT INFORMATION
  Report Type: 
  Country: None (occurrence: None)
  Receive Date: 20111213
  Receipt Date: 20111206
  Transmission Date: 20120403
  Serious: Yes (Life-Threatening, Hospitalization, Other)
  Sender: FDA-Public Use
  Company Number: ES-ROCHE-GNE322271

PATIENT
  Sex: Female

DRUGS (4)
  1. CARVEDILOL [Concomitant]
  2. XOLAIR [Suspect]
     Indication: URTICARIA CHRONIC
     Route: 058
     Dates: start: 20110406, end: 20110606
  3. LEVOTHYROXINE SODIUM [Concomitant]
  4. VERAPAMIL [Concomitant]

REACTIONS (1)
  - ACUTE MYOCARDIAL INFARCTION [None]
